FAERS Safety Report 6529624-2 (Version None)
Quarter: 2010Q1

REPORT INFORMATION
  Report Type: 
  Country: None (occurrence: None)
  Receive Date: 20100107
  Receipt Date: 20100104
  Transmission Date: 20100710
  Serious: Yes (Other)
  Sender: FDA-Public Use
  Company Number: US-JNJFOC-20100101056

PATIENT
  Sex: Female

DRUGS (3)
  1. REMICADE [Suspect]
     Route: 042
  2. REMICADE [Suspect]
     Indication: RHEUMATOID ARTHRITIS
     Dosage: DOSE: 3 VIALS
     Route: 042
  3. METHOTREXATE [Concomitant]
     Dosage: 3 PILLS WEEKLY
     Route: 048

REACTIONS (3)
  - DYSPHONIA [None]
  - RASH [None]
  - SWELLING FACE [None]
